FAERS Safety Report 19638003 (Version 1)
Quarter: 2021Q3

REPORT INFORMATION
  Report Type: Spontaneous
  Country: CN (occurrence: CN)
  Receive Date: 20210730
  Receipt Date: 20210730
  Transmission Date: 20211014
  Serious: Yes (Other)
  Sender: FDA-Public Use
  Company Number: CN-AMERICAN REGENT INC-2021001960

PATIENT
  Age: 77 Year
  Sex: Female
  Weight: 32 kg

DRUGS (2)
  1. SODIUM CHLORIDE. [Concomitant]
     Active Substance: SODIUM CHLORIDE
     Indication: VEHICLE SOLUTION USE
     Dosage: 200 MILLILITER, QD
     Dates: start: 20210630, end: 20210630
  2. VENOFER [Suspect]
     Active Substance: IRON SUCROSE
     Indication: HYPOPROTEINAEMIA
     Dosage: 200 MG, 1 IN 1 D (WITH 0.9 % 200 ML SODIUM CHLORIDE)
     Dates: start: 20210630, end: 20210630

REACTIONS (2)
  - Rash pruritic [Recovered/Resolved]
  - Product use in unapproved indication [Unknown]

NARRATIVE: CASE EVENT DATE: 20210630
